FAERS Safety Report 15938994 (Version 3)
Quarter: 2019Q1

REPORT INFORMATION
  Report Type: Spontaneous
  Country: AU (occurrence: AU)
  Receive Date: 20190208
  Receipt Date: 20190221
  Transmission Date: 20190417
  Serious: Yes (Other)
  Sender: FDA-Public Use
  Company Number: AU-TEVA-2019-AU-1010268

PATIENT
  Age: 63 Year
  Sex: Female

DRUGS (1)
  1. RISEDRONATE SODIUM UNK [Suspect]
     Active Substance: RISEDRONATE SODIUM
     Indication: OSTEOPOROSIS
     Dosage: TWO DOSES, 1 WEEK APART
     Route: 065

REACTIONS (3)
  - Diplopia [Recovered/Resolved]
  - Iridocyclitis [Recovered/Resolved]
  - Periorbital swelling [Recovered/Resolved]
